FAERS Safety Report 17183358 (Version 1)
Quarter: 2019Q4

REPORT INFORMATION
  Report Type: Report from Study
  Country: FR (occurrence: FR)
  Receive Date: 20191220
  Receipt Date: 20191220
  Transmission Date: 20200122
  Serious: Yes (Other)
  Sender: FDA-Public Use
  Company Number: FR-ROCHE-2503747

PATIENT

DRUGS (1)
  1. RITUXIMAB. [Suspect]
     Active Substance: RITUXIMAB
     Indication: ANTI-NEUTROPHIL CYTOPLASMIC ANTIBODY POSITIVE VASCULITIS
     Route: 041

REACTIONS (7)
  - Bronchitis [Unknown]
  - Septic shock [Unknown]
  - Cholangitis [Unknown]
  - Febrile neutropenia [Unknown]
  - Lyme disease [Unknown]
  - Pneumonia [Unknown]
  - Urinary tract infection [Unknown]
